FAERS Safety Report 21159675 (Version 1)
Quarter: 2022Q3

REPORT INFORMATION
  Report Type: Spontaneous
  Country: US (occurrence: US)
  Receive Date: 20220802
  Receipt Date: 20220802
  Transmission Date: 20221027
  Serious: No
  Sender: FDA-Public Use
  Company Number: US-BRISTOL-MYERS SQUIBB COMPANY-2022-078665

PATIENT
  Age: 81 Year
  Sex: Male
  Weight: 71.8 kg

DRUGS (10)
  1. REVLIMID [Suspect]
     Active Substance: LENALIDOMIDE
     Indication: Plasma cell myeloma
     Dosage: DOSE : UNAVAILABLE;     FREQ : ^Q HS FOR 21 DAYS^
     Route: 048
     Dates: start: 20220125
  2. DEXAMETHASONE [Concomitant]
     Active Substance: DEXAMETHASONE
     Route: 065
  3. ACYCLOVIR [Concomitant]
     Active Substance: ACYCLOVIR
     Route: 065
  4. ACETAMINOPHEN\ASCORBIC ACID [Concomitant]
     Active Substance: ACETAMINOPHEN\ASCORBIC ACID
     Route: 065
  5. CO Q 10 [UBIDECARENONE] [Concomitant]
     Route: 065
  6. PROCHLORPERAZINE [PROCHLORPERAZINE MESILATE] [Concomitant]
     Route: 065
  7. TAMSULOISIN [Concomitant]
     Route: 065
  8. VITAMIN E [HERBAL OIL NOS;TOCOPHEROL] [Concomitant]
     Route: 065
  9. VELCADE [Concomitant]
     Active Substance: BORTEZOMIB
     Route: 065
  10. DARZALEX [Concomitant]
     Active Substance: DARATUMUMAB
     Route: 065

REACTIONS (1)
  - Diarrhoea [Unknown]
